FAERS Safety Report 17699698 (Version 8)
Quarter: 2021Q1

REPORT INFORMATION
  Report Type: Report from Study
  Country: US (occurrence: US)
  Receive Date: 20200423
  Receipt Date: 20210308
  Transmission Date: 20210419
  Serious: No
  Sender: FDA-Public Use
  Company Number: NVSC2020US108057

PATIENT
  Age: 57 Year
  Sex: Male

DRUGS (2)
  1. ENTRESTO [Suspect]
     Active Substance: SACUBITRIL\VALSARTAN
     Indication: CARDIAC FAILURE CONGESTIVE
  2. ENTRESTO [Suspect]
     Active Substance: SACUBITRIL\VALSARTAN
     Indication: CARDIAC FAILURE CHRONIC
     Dosage: 100 MG (49/51 MG), BID
     Route: 048
     Dates: start: 202004

REACTIONS (8)
  - Oedema [Recovering/Resolving]
  - Obsessive-compulsive disorder [Unknown]
  - Oedema peripheral [Recovered/Resolved]
  - Oedema peripheral [Unknown]
  - Dyspnoea [Recovering/Resolving]
  - Product dose omission issue [Recovering/Resolving]
  - Joint swelling [Recovering/Resolving]
  - Product availability issue [Unknown]

NARRATIVE: CASE EVENT DATE: 202004
